FAERS Safety Report 9014378 (Version 1)
Quarter: 2013Q1

REPORT INFORMATION
  Report Type: Spontaneous
  Country: US (occurrence: US)
  Receive Date: 20130115
  Receipt Date: 20130115
  Transmission Date: 20140127
  Serious: No
  Sender: FDA-Public Use
  Company Number: US-PFIZER INC-2013016056

PATIENT
  Age: 64 Year
  Sex: Female
  Weight: 74.83 kg

DRUGS (3)
  1. LYRICA [Suspect]
     Indication: NERVE COMPRESSION
     Dosage: 50 MG, 6X/DAY
     Dates: start: 201204
  2. LYRICA [Suspect]
     Dosage: 50 MG, UNK
  3. CARISOPRODOL [Suspect]
     Indication: TEMPOROMANDIBULAR JOINT SYNDROME
     Dosage: UNK,DAILY
     Dates: start: 201301

REACTIONS (2)
  - Chest discomfort [Not Recovered/Not Resolved]
  - Palpitations [Not Recovered/Not Resolved]
